FAERS Safety Report 10475496 (Version 1)
Quarter: 2014Q3

REPORT INFORMATION
  Report Type: Spontaneous
  Country: US (occurrence: US)
  Receive Date: 20140925
  Receipt Date: 20140925
  Transmission Date: 20150326
  Serious: Yes (Hospitalization)
  Sender: FDA-Public Use
  Company Number: US-BRISTOL-MYERS SQUIBB COMPANY-21429212

PATIENT
  Age: 77 Year
  Sex: Male
  Weight: 61.22 kg

DRUGS (2)
  1. ABILIFY [Suspect]
     Active Substance: ARIPIPRAZOLE
     Dosage: 30MG DAILY?CHANGED BACK TO 20MG  AND NOW ON 10 MG DAILY
     Dates: start: 20140805
  2. PERPHENAZINE. [Concomitant]
     Active Substance: PERPHENAZINE
     Indication: INSOMNIA

REACTIONS (2)
  - Mania [Recovering/Resolving]
  - Wrong technique in drug usage process [Unknown]

NARRATIVE: CASE EVENT DATE: 201408
